FAERS Safety Report 10175108 (Version 1)
Quarter: 2014Q2

REPORT INFORMATION
  Report Type: Report from Study
  Country: CA (occurrence: CA)
  Receive Date: 20140515
  Receipt Date: 20140515
  Transmission Date: 20141212
  Serious: Yes (Hospitalization, Other)
  Sender: FDA-Public Use
  Company Number: CA-ABBVIE-14P-028-1236593-00

PATIENT
  Sex: Male
  Weight: 57.2 kg

DRUGS (1)
  1. LUPRON DEPOT [Suspect]
     Indication: PROSTATE CANCER
     Route: 030
     Dates: start: 20130326

REACTIONS (4)
  - Bone neoplasm [Unknown]
  - Prostate cancer [Unknown]
  - Terminal state [Unknown]
  - Prostatic specific antigen increased [Unknown]
